FAERS Safety Report 19686520 (Version 1)
Quarter: 2021Q3

REPORT INFORMATION
  Report Type: Report from Study
  Country: CA (occurrence: CA)
  Receive Date: 20210811
  Receipt Date: 20210811
  Transmission Date: 20211014
  Serious: Yes (Hospitalization, Other)
  Sender: FDA-Public Use
  Company Number: CA-JNJFOC-20210416646

PATIENT
  Age: 43 Year
  Sex: Female

DRUGS (1)
  1. REMICADE [Suspect]
     Active Substance: INFLIXIMAB
     Indication: CROHN^S DISEASE
     Dosage: ON 08?APR?2021, THE PATIENT RECEIVED 114TH INFLIXIMAB INFUSION OF 900 MG. PARTIAL HARVEY?BRADSHAW CO
     Route: 042
     Dates: start: 20080806

REACTIONS (7)
  - Abdominal pain [Unknown]
  - Ureteral stent insertion [Recovered/Resolved]
  - Dysphagia [Recovered/Resolved]
  - Back pain [Not Recovered/Not Resolved]
  - Blood urine present [Not Recovered/Not Resolved]
  - Fungal infection [Unknown]
  - General physical health deterioration [Unknown]

NARRATIVE: CASE EVENT DATE: 2021
